FAERS Safety Report 7298513-0 (Version None)
Quarter: 2011Q1

REPORT INFORMATION
  Report Type: 
  Country: None (occurrence: None)
  Receive Date: 20110214
  Receipt Date: 20110214
  Transmission Date: 20110831
  Serious: Yes (Other)
  Sender: FDA-Public Use
  Company Number: None

PATIENT
  Sex: Female
  Weight: 64.4108 kg

DRUGS (7)
  1. CLIMARA [Concomitant]
  2. VALTREX [Concomitant]
  3. WELLBUTRIN XL [Concomitant]
  4. BUPROPION XL 300 MG TEVA [Suspect]
     Indication: DEPRESSION
     Dosage: 300 MG QDAY ORAL
     Route: 048
     Dates: start: 20090101, end: 20090601
  5. HUMALOG INSULIN VIA PUMP [Concomitant]
  6. BUPROPION XL 300MG WATSON [Suspect]
     Indication: DEPRESSION
     Dosage: 300MG QDAY ORAL
     Route: 048
     Dates: start: 20090601, end: 20091201
  7. DAPSONE [Concomitant]

REACTIONS (3)
  - COELIAC DISEASE [None]
  - PRODUCT SUBSTITUTION ISSUE [None]
  - CONDITION AGGRAVATED [None]
